FAERS Safety Report 6659691-7 (Version None)
Quarter: 2010Q1

REPORT INFORMATION
  Report Type: 
  Country: None (occurrence: None)
  Receive Date: 20100330
  Receipt Date: 20100326
  Transmission Date: 20100710
  Serious: Yes (Other)
  Sender: FDA-Public Use
  Company Number: PHEH2010US03342

PATIENT
  Age: 68 Year
  Sex: Female

DRUGS (6)
  1. ZOMETA [Suspect]
     Indication: MULTIPLE MYELOMA
     Dosage: UNK, UNK
     Route: 042
  2. DILAUDID [Concomitant]
     Dosage: UNK, UNK
     Route: 065
  3. METHADONE [Concomitant]
     Dosage: UNK, UNK
     Route: 065
  4. FENTANYL CITRATE [Concomitant]
     Dosage: UNK, UNK
     Route: 065
  5. LYRICA [Concomitant]
     Dosage: UNK, UNK
     Route: 065
  6. BUSPAR [Concomitant]
     Dosage: UNK, UNK
     Route: 065

REACTIONS (2)
  - OSTEONECROSIS [None]
  - PAIN IN JAW [None]
